FAERS Safety Report 21769119 (Version 1)
Quarter: 2022Q4

REPORT INFORMATION
  Report Type: Report from Study
  Country: ES (occurrence: ES)
  Receive Date: 20221222
  Receipt Date: 20221222
  Transmission Date: 20230113
  Serious: No
  Sender: FDA-Public Use
  Company Number: ES-JNJFOC-20221246140

PATIENT

DRUGS (1)
  1. PONESIMOD [Suspect]
     Active Substance: PONESIMOD
     Indication: Multiple sclerosis
     Route: 048

REACTIONS (2)
  - Treatment noncompliance [Unknown]
  - Drug tolerance [Unknown]
